FAERS Safety Report 8563699-4 (Version None)
Quarter: 2012Q3

REPORT INFORMATION
  Report Type: 
  Country: None (occurrence: None)
  Receive Date: 20120803
  Receipt Date: 20120726
  Transmission Date: 20120928
  Serious: No
  Sender: FDA-Public Use
  Company Number: US-BIOGENIDEC-2012BI028509

PATIENT
  Sex: Female

DRUGS (3)
  1. AVONEX [Concomitant]
     Indication: MULTIPLE SCLEROSIS
     Route: 030
     Dates: start: 20080301
  2. TYSABRI [Suspect]
     Indication: MULTIPLE SCLEROSIS
     Route: 042
     Dates: start: 20080317, end: 20120301
  3. TYSABRI [Suspect]
     Route: 042
     Dates: start: 20120503

REACTIONS (3)
  - GENERAL PHYSICAL HEALTH DETERIORATION [None]
  - FEELING ABNORMAL [None]
  - FALL [None]
